FAERS Safety Report 8859437 (Version 2)
Quarter: 2013Q1

REPORT INFORMATION
  Report Type: Spontaneous
  Country: FR (occurrence: FR)
  Receive Date: 20121024
  Receipt Date: 20130103
  Transmission Date: 20140127
  Serious: Yes (Hospitalization, Other)
  Sender: FDA-Public Use
  Company Number: FR-ROCHE-1139070

PATIENT
  Age: 75 Year
  Sex: Female

DRUGS (5)
  1. XOLAIR [Suspect]
     Indication: ASTHMA
     Route: 065
     Dates: start: 201011
  2. XOLAIR [Suspect]
     Route: 065
     Dates: start: 201208
  3. SERETIDE [Concomitant]
     Route: 065
     Dates: start: 2000
  4. SINGULAIR [Concomitant]
     Route: 065
     Dates: start: 2000
  5. AERIUS [Concomitant]
     Route: 065
     Dates: start: 2000

REACTIONS (5)
  - Hypotension [Recovered/Resolved]
  - Malaise [Recovered/Resolved]
  - Urticaria [Unknown]
  - Syncope [Recovered/Resolved]
  - Fall [Recovered/Resolved]
